FAERS Safety Report 8606757 (Version 3)
Quarter: 2014Q1

REPORT INFORMATION
  Report Type: Spontaneous
  Country: US (occurrence: US)
  Receive Date: 20120611
  Receipt Date: 20140122
  Transmission Date: 20141002
  Serious: Yes (Hospitalization, Other)
  Sender: FDA-Public Use
  Company Number: US-ASTRAZENECA-2012SE35400

PATIENT
  Age: 18211 Day
  Sex: Male
  Weight: 72.6 kg

DRUGS (11)
  1. NEXIUM [Suspect]
     Indication: DYSPEPSIA
     Route: 048
     Dates: start: 200301, end: 201106
  2. NEXIUM [Suspect]
     Indication: GASTROOESOPHAGEAL REFLUX DISEASE
     Route: 048
     Dates: start: 200301, end: 201106
  3. NEXIUM [Suspect]
     Indication: DYSPEPSIA
     Dosage: GENERIC
     Route: 048
     Dates: start: 2005, end: 2011
  4. NEXIUM [Suspect]
     Indication: GASTROOESOPHAGEAL REFLUX DISEASE
     Dosage: GENERIC
     Route: 048
     Dates: start: 2005, end: 2011
  5. NEXIUM [Suspect]
     Indication: DYSPEPSIA
     Route: 048
     Dates: start: 20030302
  6. NEXIUM [Suspect]
     Indication: GASTROOESOPHAGEAL REFLUX DISEASE
     Route: 048
     Dates: start: 20030302
  7. OMEPRAZOLE [Suspect]
     Dosage: OTC GENERIC
     Route: 048
     Dates: start: 200506, end: 201101
  8. OMEPRAZOLE [Suspect]
     Route: 048
     Dates: start: 20110205
  9. TUMS [Concomitant]
  10. ALBUTEROL [Concomitant]
     Indication: ASTHMA
  11. ALPRAZOLAM [Concomitant]
     Indication: ANXIETY

REACTIONS (8)
  - Femoral neck fracture [Unknown]
  - Fall [Unknown]
  - Osteoporosis [Unknown]
  - Multiple fractures [Unknown]
  - Osteopenia [Unknown]
  - Calcium deficiency [Unknown]
  - Bone disorder [Unknown]
  - Nasal septum deviation [Unknown]
